FAERS Safety Report 6041748-5 (Version None)
Quarter: 2009Q1

REPORT INFORMATION
  Report Type: 
  Country: None (occurrence: None)
  Receive Date: 20090116
  Receipt Date: 20090114
  Transmission Date: 20090719
  Serious: Yes (Other)
  Sender: FDA-Public Use
  Company Number: US-PFIZER INC-2008094268

PATIENT
  Sex: Female
  Weight: 63.5 kg

DRUGS (11)
  1. LYRICA [Suspect]
     Indication: FIBROMYALGIA
     Route: 048
     Dates: start: 20070901
  2. METHADONE HCL [Suspect]
     Dates: start: 20080101, end: 20080101
  3. LAMICTAL [Concomitant]
  4. ADDERALL 10 [Concomitant]
  5. MULTIPLE VITAMIN [Concomitant]
  6. XANAX [Concomitant]
  7. LIBRAX [Concomitant]
  8. AMBIEN [Concomitant]
  9. FIORICET [Concomitant]
  10. LO/OVRAL [Concomitant]
  11. CODEINE SUL TAB [Concomitant]

REACTIONS (2)
  - JOINT SWELLING [None]
  - OEDEMA PERIPHERAL [None]
